FAERS Safety Report 4310473-0 (Version None)
Quarter: 2004Q1

REPORT INFORMATION
  Report Type: 
  Country: None (occurrence: None)
  Receive Date: 20040303
  Receipt Date: 20040227
  Transmission Date: 20041129
  Serious: Yes (Life-Threatening, Hospitalization)
  Sender: FDA-Public Use
  Company Number: US-BRISTOL-MYERS SQUIBB COMPANY-12518320

PATIENT
  Age: 72 Year
  Sex: Male
  Weight: 50 kg

DRUGS (9)
  1. CARBOPLATIN [Suspect]
     Indication: NON-SMALL CELL LUNG CANCER
     Dosage: DOSE = AUC 6  1ST DOSE ON 22DEC03
     Route: 042
     Dates: start: 20040112, end: 20040112
  2. MEGACE [Suspect]
     Route: 048
     Dates: start: 20031229, end: 20040121
  3. XYOTAX [Suspect]
     Indication: NON-SMALL CELL LUNG CANCER
     Dosage: DOSE = 210 MG/M2  1ST DOSE - 22DEC03
     Route: 042
     Dates: start: 20040112, end: 20040112
  4. KYTRIL [Concomitant]
  5. PENTASA [Concomitant]
  6. VICODIN [Concomitant]
  7. TYLENOL (CAPLET) [Concomitant]
  8. COMPAZINE [Concomitant]
  9. ATIVAN [Concomitant]

REACTIONS (9)
  - ANAEMIA [None]
  - ASTHENIA [None]
  - CHOLELITHIASIS [None]
  - CULTURE URINE POSITIVE [None]
  - HAEMATURIA [None]
  - NEUTROPENIA [None]
  - PNEUMONIA [None]
  - PULMONARY EMBOLISM [None]
  - THROMBOSIS [None]
